FAERS Safety Report 4977031-6 (Version None)
Quarter: 2006Q2

REPORT INFORMATION
  Report Type: 
  Country: None (occurrence: None)
  Receive Date: 20060412
  Receipt Date: 20060403
  Transmission Date: 20061013
  Serious: Yes (Hospitalization, Other)
  Sender: FDA-Public Use
  Company Number: HQWYE636004APR06

PATIENT

DRUGS (2)
  1. TIGECYCLINE                     (TIGECYCLINE, INJECTION) [Suspect]
     Indication: ABDOMINAL INFECTION
     Dosage: 100 MG LOAD, 50 MG TWICE DAILY, INTRAVENOUS
     Route: 042
     Dates: start: 20060215, end: 20060227
  2. FLAGYL [Concomitant]

REACTIONS (3)
  - ENTEROBACTER BACTERAEMIA [None]
  - SPUTUM CULTURE POSITIVE [None]
  - STAPHYLOCOCCAL INFECTION [None]
